FAERS Safety Report 8132129-9 (Version None)
Quarter: 2012Q1

REPORT INFORMATION
  Report Type: 
  Country: None (occurrence: None)
  Receive Date: 20120213
  Receipt Date: 20120210
  Transmission Date: 20120608
  Serious: Yes (Other)
  Sender: FDA-Public Use
  Company Number: US-PFIZER INC-2012037186

PATIENT
  Sex: Female
  Weight: 102 kg

DRUGS (6)
  1. NORVASC [Suspect]
     Indication: CARDIAC DISORDER
  2. BYSTOLIC [Suspect]
     Indication: HYPERTENSION
     Dosage: 5 MG, 1X/DAY
     Route: 048
     Dates: start: 20110525, end: 20110501
  3. DIGOXIN [Concomitant]
     Indication: CARDIAC DISORDER
     Dosage: UNK
  4. TOPAMAX [Concomitant]
     Indication: CONVULSION
     Dosage: UNK
  5. NORVASC [Suspect]
     Indication: HYPERTENSION
     Dosage: 5 MG, 1X/DAY
     Route: 048
  6. PHENOBARBITAL [Concomitant]
     Indication: CONVULSION
     Dosage: UNK

REACTIONS (11)
  - RENAL FAILURE [None]
  - DYSPNOEA [None]
  - HYPERTENSION [None]
  - PULMONARY OEDEMA [None]
  - PALPITATIONS [None]
  - CARDIAC FAILURE CONGESTIVE [None]
  - ABDOMINAL DISCOMFORT [None]
  - OEDEMA PERIPHERAL [None]
  - COUGH [None]
  - ABDOMINAL DISTENSION [None]
  - OEDEMA [None]
